FAERS Safety Report 13349583 (Version 1)
Quarter: 2017Q1

REPORT INFORMATION
  Report Type: Report from Study
  Country: BR (occurrence: BR)
  Receive Date: 20170320
  Receipt Date: 20170320
  Transmission Date: 20170428
  Serious: Yes (Hospitalization, Other)
  Sender: FDA-Public Use
  Company Number: PHHY2017BR040227

PATIENT
  Sex: Female
  Weight: 66 kg

DRUGS (2)
  1. EXFORGE HCT [Suspect]
     Active Substance: AMLODIPINE BESYLATE\HYDROCHLOROTHIAZIDE\VALSARTAN
     Indication: PRODUCT USED FOR UNKNOWN INDICATION
     Dosage: 1 DF (AMLODIPINE 10 MG, VALSARTAN 320 MG, AND HYDROCHLOROTHIAZIDE 25 MG), QD
     Route: 048
  2. GALVUS MET [Suspect]
     Active Substance: METFORMIN HYDROCHLORIDE\VILDAGLIPTIN
     Indication: PRODUCT USED FOR UNKNOWN INDICATION
     Dosage: 1 DF (METFORMIN 850 MG, VILDAGLIPTIN 50 MG), QD (1 IN THE MORNING)
     Route: 048

REACTIONS (9)
  - Hypophagia [Not Recovered/Not Resolved]
  - Aphasia [Unknown]
  - Choking [Unknown]
  - Transient ischaemic attack [Unknown]
  - Dementia [Unknown]
  - Wrong technique in product usage process [Unknown]
  - Body height decreased [Unknown]
  - Malaise [Unknown]
  - Mobility decreased [Unknown]
